FAERS Safety Report 25851533 (Version 1)
Quarter: 2025Q3

REPORT INFORMATION
  Report Type: Spontaneous
  Country: GB (occurrence: GB)
  Receive Date: 20250926
  Receipt Date: 20250926
  Transmission Date: 20251021
  Serious: Yes (Disabling, Other)
  Sender: MYLAN
  Company Number: None

PATIENT
  Age: 69 Year
  Sex: Male

DRUGS (40)
  1. FINASTERIDE [Suspect]
     Active Substance: FINASTERIDE
     Indication: Product used for unknown indication
  2. FINASTERIDE [Suspect]
     Active Substance: FINASTERIDE
     Route: 065
  3. FINASTERIDE [Suspect]
     Active Substance: FINASTERIDE
     Route: 065
  4. FINASTERIDE [Suspect]
     Active Substance: FINASTERIDE
  5. FINASTERIDE [Suspect]
     Active Substance: FINASTERIDE
     Indication: Benign prostatic hyperplasia
  6. FINASTERIDE [Suspect]
     Active Substance: FINASTERIDE
     Route: 065
  7. FINASTERIDE [Suspect]
     Active Substance: FINASTERIDE
     Route: 065
  8. FINASTERIDE [Suspect]
     Active Substance: FINASTERIDE
  9. ATORVASTATIN [Concomitant]
     Active Substance: ATORVASTATIN
     Indication: Blood cholesterol increased
  10. ATORVASTATIN [Concomitant]
     Active Substance: ATORVASTATIN
     Route: 065
  11. ATORVASTATIN [Concomitant]
     Active Substance: ATORVASTATIN
     Route: 065
  12. ATORVASTATIN [Concomitant]
     Active Substance: ATORVASTATIN
  13. BISOPROLOL [Concomitant]
     Active Substance: BISOPROLOL
     Indication: Heart valve replacement
  14. BISOPROLOL [Concomitant]
     Active Substance: BISOPROLOL
     Route: 065
  15. BISOPROLOL [Concomitant]
     Active Substance: BISOPROLOL
     Route: 065
  16. BISOPROLOL [Concomitant]
     Active Substance: BISOPROLOL
  17. TAMSULOSIN [Concomitant]
     Active Substance: TAMSULOSIN
     Indication: Benign prostatic hyperplasia
  18. TAMSULOSIN [Concomitant]
     Active Substance: TAMSULOSIN
     Route: 065
  19. TAMSULOSIN [Concomitant]
     Active Substance: TAMSULOSIN
     Route: 065
  20. TAMSULOSIN [Concomitant]
     Active Substance: TAMSULOSIN
  21. LANSOPRAZOLE [Concomitant]
     Active Substance: LANSOPRAZOLE
     Indication: Gastric ulcer
  22. LANSOPRAZOLE [Concomitant]
     Active Substance: LANSOPRAZOLE
     Route: 065
  23. LANSOPRAZOLE [Concomitant]
     Active Substance: LANSOPRAZOLE
     Route: 065
  24. LANSOPRAZOLE [Concomitant]
     Active Substance: LANSOPRAZOLE
  25. LOSARTAN [Concomitant]
     Active Substance: LOSARTAN
     Indication: Heart valve replacement
  26. LOSARTAN [Concomitant]
     Active Substance: LOSARTAN
     Route: 065
  27. LOSARTAN [Concomitant]
     Active Substance: LOSARTAN
     Route: 065
  28. LOSARTAN [Concomitant]
     Active Substance: LOSARTAN
  29. ASPIRIN [Concomitant]
     Active Substance: ASPIRIN
     Indication: Heart valve replacement
  30. ASPIRIN [Concomitant]
     Active Substance: ASPIRIN
     Route: 065
  31. ASPIRIN [Concomitant]
     Active Substance: ASPIRIN
     Route: 065
  32. ASPIRIN [Concomitant]
     Active Substance: ASPIRIN
  33. CHOLECALCIFEROL [Concomitant]
     Active Substance: CHOLECALCIFEROL
     Indication: Vitamin D decreased
  34. CHOLECALCIFEROL [Concomitant]
     Active Substance: CHOLECALCIFEROL
     Route: 065
  35. CHOLECALCIFEROL [Concomitant]
     Active Substance: CHOLECALCIFEROL
     Route: 065
  36. CHOLECALCIFEROL [Concomitant]
     Active Substance: CHOLECALCIFEROL
  37. POTASSIUM BICARBONATE\SODIUM ALGINATE [Concomitant]
     Active Substance: POTASSIUM BICARBONATE\SODIUM ALGINATE
     Indication: Cough
  38. POTASSIUM BICARBONATE\SODIUM ALGINATE [Concomitant]
     Active Substance: POTASSIUM BICARBONATE\SODIUM ALGINATE
     Route: 065
  39. POTASSIUM BICARBONATE\SODIUM ALGINATE [Concomitant]
     Active Substance: POTASSIUM BICARBONATE\SODIUM ALGINATE
     Route: 065
  40. POTASSIUM BICARBONATE\SODIUM ALGINATE [Concomitant]
     Active Substance: POTASSIUM BICARBONATE\SODIUM ALGINATE

REACTIONS (2)
  - Depression [Not Recovered/Not Resolved]
  - Anxiety [Not Recovered/Not Resolved]
